FAERS Safety Report 6003875-8 (Version None)
Quarter: 2008Q4

REPORT INFORMATION
  Report Type: 
  Country: None (occurrence: None)
  Receive Date: 20081216
  Receipt Date: 20081114
  Transmission Date: 20090506
  Serious: No
  Sender: FDA-Public Use
  Company Number: US-BAYER-200838862NA

PATIENT
  Sex: Female

DRUGS (1)
  1. YAZ [Suspect]
     Indication: DRUG USE FOR UNKNOWN INDICATION
     Route: 048
     Dates: start: 20080801

REACTIONS (5)
  - ABNORMAL WITHDRAWAL BLEEDING [None]
  - HYPERSOMNIA [None]
  - NAUSEA [None]
  - NO ADVERSE EVENT [None]
  - VAGINAL HAEMORRHAGE [None]
